FAERS Safety Report 21240434 (Version 1)
Quarter: 2022Q3

REPORT INFORMATION
  Report Type: Spontaneous
  Country: US (occurrence: US)
  Receive Date: 20220822
  Receipt Date: 20220822
  Transmission Date: 20221027
  Serious: Yes (Other)
  Sender: FDA-Public Use
  Company Number: US-BRISTOL-MYERS SQUIBB COMPANY-2022-090913

PATIENT
  Age: 72 Year
  Sex: Female
  Weight: 63 kg

DRUGS (9)
  1. REVLIMID [Suspect]
     Active Substance: LENALIDOMIDE
     Indication: Plasma cell myeloma
     Dosage: 14 DAYS ON  7 DAYS OFF
     Route: 048
     Dates: start: 20220628, end: 20220719
  2. REVLIMID [Suspect]
     Active Substance: LENALIDOMIDE
     Dosage: 14 DAYS ON  7 DAYS OFF
     Route: 048
     Dates: start: 20220706
  3. REVLIMID [Suspect]
     Active Substance: LENALIDOMIDE
     Route: 048
     Dates: start: 20220719, end: 20220810
  4. REVLIMID [Suspect]
     Active Substance: LENALIDOMIDE
     Route: 048
     Dates: start: 20220810
  5. VITAMIN C [Concomitant]
     Active Substance: ASCORBIC ACID
     Indication: Product used for unknown indication
     Route: 048
     Dates: start: 20220630
  6. NITROFURANTOIN MONOHYDRATE MACROCRYSTALS [Concomitant]
     Active Substance: NITROFURANTOIN\NITROFURANTOIN MONOHYDRATE
     Indication: Product used for unknown indication
     Route: 048
     Dates: start: 20220629
  7. CICLOPIROX [Concomitant]
     Active Substance: CICLOPIROX
     Indication: Product used for unknown indication
     Route: 065
     Dates: start: 20220629
  8. CALCIUM ANTACID EXTRA STRENGTH [Concomitant]
     Active Substance: CALCIUM CARBONATE
     Indication: Product used for unknown indication
     Route: 048
     Dates: start: 20220630
  9. SM Vitamin D3 [Concomitant]
     Indication: Product used for unknown indication
     Route: 048
     Dates: start: 20220630

REACTIONS (2)
  - Neutropenia [Recovered/Resolved]
  - Off label use [Unknown]

NARRATIVE: CASE EVENT DATE: 20220728
